FAERS Safety Report 24414743 (Version 1)
Quarter: 2024Q4

REPORT INFORMATION
  Report Type: Spontaneous
  Country: US (occurrence: US)
  Receive Date: 20241009
  Receipt Date: 20241009
  Transmission Date: 20250115
  Serious: Yes (Death, Life-Threatening, Hospitalization)
  Sender: ENDO
  Company Number: US-ENDO USA, INC.-2024-003534

PATIENT
  Age: 61 Year
  Sex: Male

DRUGS (1)
  1. THEO-24 [Suspect]
     Active Substance: THEOPHYLLINE ANHYDROUS
     Indication: Product used for unknown indication
     Dosage: UNK UNKNOWN, UNKNOWN
     Route: 065

REACTIONS (5)
  - Disseminated intravascular coagulation [Fatal]
  - Shock [Fatal]
  - Toxicity to various agents [Fatal]
  - Hypoxia [Unknown]
  - Vasoplegia syndrome [Unknown]
